FAERS Safety Report 25040372 (Version 1)
Quarter: 2025Q1

REPORT INFORMATION
  Report Type: Spontaneous
  Country: BE (occurrence: BE)
  Receive Date: 20250305
  Receipt Date: 20250305
  Transmission Date: 20250409
  Serious: Yes (Other)
  Sender: SERVIER
  Company Number: BE-SERVIER-S25002628

PATIENT

DRUGS (1)
  1. TIBSOVO [Suspect]
     Active Substance: IVOSIDENIB
     Indication: Acute myeloid leukaemia
     Route: 048
     Dates: start: 2020

REACTIONS (1)
  - Myocardial infarction [Unknown]
